FAERS Safety Report 13086552 (Version 1)
Quarter: 2017Q1

REPORT INFORMATION
  Report Type: Spontaneous
  Country: US (occurrence: US)
  Receive Date: 20170104
  Receipt Date: 20170104
  Transmission Date: 20170428
  Serious: No
  Sender: FDA-Public Use
  Company Number: US-DRREDDYS-USA/USA/16/0081718

PATIENT
  Age: 54 Year
  Sex: Male
  Weight: 72.12 kg

DRUGS (2)
  1. HABITROL [Suspect]
     Active Substance: NICOTINE
     Indication: SMOKING CESSATION THERAPY
     Route: 061
  2. HABITROL [Suspect]
     Active Substance: NICOTINE
     Route: 061

REACTIONS (4)
  - Product quality issue [Unknown]
  - Inappropriate schedule of drug administration [Unknown]
  - Nicotine dependence [Not Recovered/Not Resolved]
  - Headache [Not Recovered/Not Resolved]
